FAERS Safety Report 22096589 (Version 1)
Quarter: 2023Q1

REPORT INFORMATION
  Report Type: Spontaneous
  Country: US (occurrence: US)
  Receive Date: 20230315
  Receipt Date: 20230315
  Transmission Date: 20230418
  Serious: No
  Sender: FDA-Public Use
  Company Number: US-Ipsen Biopharmaceuticals, Inc.-2023-01754

PATIENT
  Sex: Female

DRUGS (1)
  1. DYSPORT [Suspect]
     Active Substance: ABOBOTULINUMTOXINA
     Indication: Skin wrinkling
     Dosage: 61 IU
     Route: 065
     Dates: start: 20221129, end: 20221129

REACTIONS (5)
  - Injection site mass [Unknown]
  - Injection site inflammation [Unknown]
  - Drug ineffective [Unknown]
  - Off label use [Unknown]
  - Prescribed overdose [Unknown]

NARRATIVE: CASE EVENT DATE: 20221129
